FAERS Safety Report 9081290 (Version 2)
Quarter: 2013Q1

REPORT INFORMATION
  Report Type: Spontaneous
  Country: US (occurrence: US)
  Receive Date: 20130130
  Receipt Date: 20130221
  Transmission Date: 20140127
  Serious: Yes (Death)
  Sender: FDA-Public Use
  Company Number: US-CELGENEUS-163-21880-12101596

PATIENT
  Age: 77 Year
  Sex: Male

DRUGS (7)
  1. REVLIMID [Suspect]
     Indication: PLASMA CELL MYELOMA
     Dosage: 25 MILLIGRAM
     Route: 048
     Dates: start: 20120813
  2. REVLIMID [Suspect]
     Dosage: 15 MILLIGRAM
     Route: 048
     Dates: start: 201210, end: 20121029
  3. VELCADE [Concomitant]
     Indication: PLASMA CELL MYELOMA
     Route: 065
     Dates: start: 20120813, end: 20121028
  4. DEXAMETHASONE [Concomitant]
     Indication: PLASMA CELL MYELOMA
     Route: 065
     Dates: start: 20120813, end: 20121028
  5. ASPIRIN [Concomitant]
     Indication: ARTERIOSCLEROSIS CORONARY ARTERY
     Dosage: 325 MILLIGRAM
     Route: 048
  6. METHYLDOPA [Concomitant]
     Indication: HYPERTENSION
     Dosage: 500 MILLIGRAM
     Route: 048
     Dates: end: 201210
  7. VYTORIN [Concomitant]
     Indication: ARTERIOSCLEROSIS CORONARY ARTERY
     Dosage: 10/40 MG
     Route: 048
     Dates: end: 201210

REACTIONS (1)
  - Renal cancer metastatic [Fatal]
